FAERS Safety Report 7900763-4 (Version None)
Quarter: 2011Q4

REPORT INFORMATION
  Report Type: 
  Country: None (occurrence: None)
  Receive Date: 20111108
  Receipt Date: 20110921
  Transmission Date: 20120403
  Serious: Yes (Other)
  Sender: FDA-Public Use
  Company Number: US-AMGEN-USASP2011057762

PATIENT

DRUGS (1)
  1. XGEVA [Suspect]
     Indication: METASTASES TO BONE
     Dosage: UNK

REACTIONS (1)
  - DERMATOMYOSITIS [None]
